FAERS Safety Report 4972826-7 (Version None)
Quarter: 2006Q2

REPORT INFORMATION
  Report Type: 
  Country: None (occurrence: None)
  Receive Date: 20060414
  Receipt Date: 20060404
  Transmission Date: 20061013
  Serious: Yes (Death)
  Sender: FDA-Public Use
  Company Number: DE-JNJFOC-20060205048

PATIENT
  Age: 69 Year
  Sex: Female

DRUGS (1)
  1. RISPERDAL [Suspect]
     Route: 065

REACTIONS (1)
  - DEATH [None]
